FAERS Safety Report 4792427-3 (Version None)
Quarter: 2005Q4

REPORT INFORMATION
  Report Type: 
  Country: None (occurrence: None)
  Receive Date: 20051010
  Receipt Date: 20041006
  Transmission Date: 20060501
  Serious: No
  Sender: FDA-Public Use
  Company Number: US-GLAXOSMITHKLINE-A0528789A

PATIENT
  Age: 60 Year
  Sex: Female

DRUGS (2)
  1. LANOXIN [Suspect]
     Indication: CARDIAC FAILURE
     Dosage: .25MG PER DAY
     Route: 048
     Dates: start: 20040501
  2. COUMADIN [Concomitant]
     Dates: start: 20040503

REACTIONS (1)
  - DIZZINESS [None]
